FAERS Safety Report 9166521 (Version 2)
Quarter: 2013Q1

REPORT INFORMATION
  Report Type: Spontaneous
  Country: US (occurrence: US)
  Receive Date: 20130315
  Receipt Date: 20130319
  Transmission Date: 20140127
  Serious: No
  Sender: FDA-Public Use
  Company Number: US-009507513-1303USA004582

PATIENT
  Age: 42 Year
  Sex: Female

DRUGS (1)
  1. RIZATRIPTAN BENZOATE [Suspect]
     Indication: MIGRAINE
     Dosage: 1 TABLET, PRN
     Route: 048
     Dates: start: 20130301, end: 20130302

REACTIONS (5)
  - Constipation [Not Recovered/Not Resolved]
  - Haemorrhage [Recovering/Resolving]
  - Somnolence [Recovering/Resolving]
  - Drug ineffective [Unknown]
  - Insomnia [Unknown]
